FAERS Safety Report 9791806 (Version 1)
Quarter: 2014Q1

REPORT INFORMATION
  Report Type: Spontaneous
  Country: NO (occurrence: NO)
  Receive Date: 20140102
  Receipt Date: 20140102
  Transmission Date: 20141002
  Serious: Yes (Other)
  Sender: FDA-Public Use
  Company Number: NO-JNJFOC-20131217004

PATIENT
  Age: 86 Year
  Sex: Female

DRUGS (2)
  1. XARELTO [Suspect]
     Indication: EMBOLISM
     Route: 048
     Dates: start: 201310, end: 201311
  2. ZOCOR [Concomitant]
     Route: 048

REACTIONS (4)
  - Dysphonia [Unknown]
  - Asthenia [Unknown]
  - Visual impairment [Unknown]
  - Fatigue [Unknown]
